FAERS Safety Report 12643329 (Version 1)
Quarter: 2016Q3

REPORT INFORMATION
  Report Type: Spontaneous
  Country: US (occurrence: US)
  Receive Date: 20160811
  Receipt Date: 20160811
  Transmission Date: 20161109
  Serious: No
  Sender: FDA-Public Use
  Company Number: US-LUPIN PHARMACEUTICALS INC.-2016-00540

PATIENT
  Sex: Female
  Weight: 74.46 kg

DRUGS (2)
  1. CYCLOBENZAPRINE [Concomitant]
     Active Substance: CYCLOBENZAPRINE
     Indication: PAIN
     Dosage: ONE HALF TO ONE TABLET AT NIGHT
     Route: 048
     Dates: start: 2013
  2. MELOXICAM TABLETS USP 7.5MG [Suspect]
     Active Substance: MELOXICAM
     Indication: MUSCULOSKELETAL PAIN
     Dosage: ONE TABLET
     Route: 048
     Dates: start: 201509, end: 20160105

REACTIONS (1)
  - Drug ineffective [Unknown]
